FAERS Safety Report 5261944-4 (Version None)
Quarter: 2007Q1

REPORT INFORMATION
  Report Type: 
  Country: None (occurrence: None)
  Receive Date: 20070308
  Receipt Date: 20070227
  Transmission Date: 20070707
  Serious: Yes (Other)
  Sender: FDA-Public Use
  Company Number: 220443

PATIENT
  Age: 54 Year
  Sex: Female
  Weight: 56.8 kg

DRUGS (13)
  1. RITUXAN [Suspect]
     Indication: RHEUMATOID ARTHRITIS
     Dosage: 1000 MG, DAYS 1 + 15, INTRAVENOUS
     Route: 042
     Dates: start: 20040615
  2. METHYLPREDNISOLONE [Suspect]
     Indication: RHEUMATOID ARTHRITIS
     Dosage: 100 MG, DAYS 1 + 15, INTRAVENOUS
     Route: 042
     Dates: start: 20040615
  3. PREDNISONE TAB [Suspect]
     Indication: RHEUMATOID ARTHRITIS
     Dosage: ORAL
     Route: 048
  4. PREDNISONE TAB [Concomitant]
  5. AMBIEN [Concomitant]
  6. FOLIC ACID [Concomitant]
  7. METHOTREXATE [Concomitant]
  8. ASPIRIN [Concomitant]
  9. PRILOSEC [Concomitant]
  10. SOMA [Concomitant]
  11. ESTRACE [Concomitant]
  12. PAXIL [Concomitant]
  13. PREMARIN [Concomitant]

REACTIONS (5)
  - BREAST CANCER IN SITU [None]
  - METASTASES TO BREAST [None]
  - OESTROGEN RECEPTOR ASSAY POSITIVE [None]
  - PAPILLOMA [None]
  - PROGESTERONE RECEPTOR ASSAY POSITIVE [None]
